FAERS Safety Report 11914559 (Version 1)
Quarter: 2016Q1

REPORT INFORMATION
  Report Type: Spontaneous
  Country: ES (occurrence: ES)
  Receive Date: 20160113
  Receipt Date: 20160113
  Transmission Date: 20160526
  Serious: Yes (Other)
  Sender: FDA-Public Use
  Company Number: ES-IPCA LABORATORIES LIMITED-E2B_00000007

PATIENT
  Age: 74 Year
  Sex: Female

DRUGS (20)
  1. DIGOXIN. [Interacting]
     Active Substance: DIGOXIN
  2. PREDNISONE. [Interacting]
     Active Substance: PREDNISONE
     Route: 048
  3. HYDROCORTISONE. [Interacting]
     Active Substance: HYDROCORTISONE
     Route: 061
  4. METHOTREXATE [Interacting]
     Active Substance: METHOTREXATE
  5. BISOPROLOL [Interacting]
     Active Substance: BISOPROLOL
  6. ACENOCOUMAROL [Interacting]
     Active Substance: ACENOCOUMAROL
  7. METHOTREXATE [Interacting]
     Active Substance: METHOTREXATE
  8. RAMIPRIL. [Interacting]
     Active Substance: RAMIPRIL
  9. OMEPRAZOLE. [Interacting]
     Active Substance: OMEPRAZOLE
  10. ALPRAZOLAM. [Interacting]
     Active Substance: ALPRAZOLAM
  11. BISOPROLOL [Interacting]
     Active Substance: BISOPROLOL
  12. ENOXAPARIN [Interacting]
     Active Substance: ENOXAPARIN
  13. FUROSEMIDE. [Suspect]
     Active Substance: FUROSEMIDE
  14. DILTIAZEM [Interacting]
     Active Substance: DILTIAZEM
  15. CLOBETASOL [Interacting]
     Active Substance: CLOBETASOL
     Route: 061
  16. INSULIN [Concomitant]
     Active Substance: INSULIN NOS
  17. HYDROCHLOROTHIAZIDE. [Interacting]
     Active Substance: HYDROCHLOROTHIAZIDE
  18. CLORAZEPATE [Interacting]
     Active Substance: CLORAZEPATE DIPOTASSIUM
  19. METHYLPREDNISOLONE ACEPONATE [Interacting]
     Active Substance: METHYLPREDNISOLONE ACEPONATE
     Route: 061
  20. FOLIC ACID. [Concomitant]
     Active Substance: FOLIC ACID

REACTIONS (10)
  - Disorientation [Unknown]
  - Stupor [Unknown]
  - Condition aggravated [Recovering/Resolving]
  - Toxicity to various agents [Recovering/Resolving]
  - Euphoric mood [Unknown]
  - Erythema [Recovering/Resolving]
  - Somnolence [Unknown]
  - Erythrodermic psoriasis [Recovering/Resolving]
  - Drug interaction [Unknown]
  - Transaminases increased [Recovering/Resolving]
